FAERS Safety Report 10082167 (Version 1)
Quarter: 2014Q2

REPORT INFORMATION
  Report Type: Spontaneous
  Country: US (occurrence: US)
  Receive Date: 20140416
  Receipt Date: 20140416
  Transmission Date: 20141212
  Serious: Yes (Other)
  Sender: FDA-Public Use
  Company Number: US-SHIRE-US201401171

PATIENT
  Sex: Male

DRUGS (6)
  1. ADDERALL XR [Suspect]
     Indication: ATTENTION DEFICIT/HYPERACTIVITY DISORDER
     Dosage: UNK, UNKNOWN
     Route: 048
  2. ADDERALL XR [Suspect]
     Indication: OPPOSITIONAL DEFIANT DISORDER
     Dosage: UNK
     Route: 048
  3. VYVANSE [Suspect]
     Indication: ATTENTION DEFICIT/HYPERACTIVITY DISORDER
     Dosage: UNK, UNKNOWN
     Route: 048
  4. VYVANSE [Suspect]
     Indication: OPPOSITIONAL DEFIANT DISORDER
  5. STRATTERA [Suspect]
     Indication: ATTENTION DEFICIT/HYPERACTIVITY DISORDER
     Dosage: UNK, UNKNOWN
     Route: 065
  6. STRATTERA [Suspect]
     Indication: OPPOSITIONAL DEFIANT DISORDER

REACTIONS (5)
  - Palpitations [Unknown]
  - Abdominal pain upper [Unknown]
  - Decreased appetite [Unknown]
  - Drug effect decreased [Unknown]
  - Off label use [Unknown]
